FAERS Safety Report 19260887 (Version 3)
Quarter: 2021Q3

REPORT INFORMATION
  Report Type: Spontaneous
  Country: US (occurrence: US)
  Receive Date: 20210515
  Receipt Date: 20210818
  Transmission Date: 20211014
  Serious: Yes (Other)
  Sender: FDA-Public Use
  Company Number: US-SHILPA MEDICARE LIMITED-SML-US-2021-00577

PATIENT
  Age: 79 Year
  Sex: Male

DRUGS (26)
  1. AZACITIDINE, UNKNOWN [Suspect]
     Active Substance: AZACITIDINE
     Dosage: CYCLE 6
     Route: 065
     Dates: start: 202006
  2. AZACITIDINE, UNKNOWN [Suspect]
     Active Substance: AZACITIDINE
     Dosage: CYCLE 13 (DOSE INCREASED)
     Route: 065
     Dates: start: 20210304, end: 20210312
  3. AZACITIDINE, UNKNOWN [Suspect]
     Active Substance: AZACITIDINE
     Dosage: CYCLE 2
     Route: 065
     Dates: start: 20200226, end: 20200305
  4. AZACITIDINE, UNKNOWN [Suspect]
     Active Substance: AZACITIDINE
     Dosage: CYCLE 4
     Route: 065
     Dates: start: 20200427, end: 20200505
  5. AZACITIDINE, UNKNOWN [Suspect]
     Active Substance: AZACITIDINE
     Dosage: CYCLE 3
     Route: 065
     Dates: start: 20200326, end: 20200403
  6. AZACITIDINE, UNKNOWN [Suspect]
     Active Substance: AZACITIDINE
     Dosage: CYCLE 5
     Route: 065
     Dates: start: 20200527, end: 20200604
  7. BYSYSTOLIC [Concomitant]
     Indication: PRODUCT USED FOR UNKNOWN INDICATION
     Route: 065
  8. FISH OIL [Concomitant]
     Active Substance: FISH OIL
     Indication: PRODUCT USED FOR UNKNOWN INDICATION
  9. AZACITIDINE, UNKNOWN [Suspect]
     Active Substance: AZACITIDINE
     Dosage: CYCLE 7
     Route: 065
     Dates: start: 20200722, end: 20200730
  10. AZACITIDINE, UNKNOWN [Suspect]
     Active Substance: AZACITIDINE
     Dosage: CYCLE 9
     Route: 065
     Dates: start: 20200921, end: 20200929
  11. ZYLOPRIM [Concomitant]
     Active Substance: ALLOPURINOL
     Indication: PRODUCT USED FOR UNKNOWN INDICATION
     Route: 065
  12. LIPITOR [Concomitant]
     Active Substance: ATORVASTATIN CALCIUM
     Indication: PRODUCT USED FOR UNKNOWN INDICATION
     Route: 048
  13. FOLIC ACID. [Concomitant]
     Active Substance: FOLIC ACID
     Indication: PRODUCT USED FOR UNKNOWN INDICATION
     Route: 065
  14. AZACITIDINE, UNKNOWN [Suspect]
     Active Substance: AZACITIDINE
     Indication: MYELODYSPLASTIC SYNDROME
     Dosage: CYCLE 1
     Route: 065
     Dates: start: 20200127, end: 20200204
  15. VITAMIN D3 [Concomitant]
     Active Substance: CHOLECALCIFEROL
     Indication: PRODUCT USED FOR UNKNOWN INDICATION
     Route: 048
  16. CYANOCOBALAMIN. [Concomitant]
     Active Substance: CYANOCOBALAMIN
     Indication: PRODUCT USED FOR UNKNOWN INDICATION
     Route: 048
  17. AZACITIDINE, UNKNOWN [Suspect]
     Active Substance: AZACITIDINE
     Dosage: CYCLE 8
     Route: 065
     Dates: start: 20200819, end: 20200827
  18. AZACITIDINE, UNKNOWN [Suspect]
     Active Substance: AZACITIDINE
     Dosage: CYCLE 10 (DOSE INCREASED)
     Route: 065
     Dates: start: 20201019, end: 20201027
  19. AZACITIDINE, UNKNOWN [Suspect]
     Active Substance: AZACITIDINE
     Route: 065
     Dates: start: 202011
  20. AZACITIDINE, UNKNOWN [Suspect]
     Active Substance: AZACITIDINE
     Dosage: CYCLE 12
     Route: 065
     Dates: start: 20210204, end: 20210212
  21. VITAMIN C [Concomitant]
     Active Substance: ASCORBIC ACID
     Indication: PRODUCT USED FOR UNKNOWN INDICATION
     Route: 065
  22. ASPIRIN. [Concomitant]
     Active Substance: ASPIRIN
     Indication: PRODUCT USED FOR UNKNOWN INDICATION
     Route: 048
  23. LEXAPRO [Concomitant]
     Active Substance: ESCITALOPRAM OXALATE
     Indication: PRODUCT USED FOR UNKNOWN INDICATION
     Route: 048
  24. EPOETIN [Concomitant]
     Active Substance: ERYTHROPOIETIN
     Indication: PRODUCT USED FOR UNKNOWN INDICATION
  25. COZAAR [Concomitant]
     Active Substance: LOSARTAN POTASSIUM
     Indication: PRODUCT USED FOR UNKNOWN INDICATION
     Route: 065
  26. ELIQUIS [Concomitant]
     Active Substance: APIXABAN
     Indication: PRODUCT USED FOR UNKNOWN INDICATION
     Route: 065

REACTIONS (4)
  - Cytogenetic abnormality [Unknown]
  - Cytopenia [Unknown]
  - Disease progression [Unknown]
  - Haemoglobin decreased [Unknown]

NARRATIVE: CASE EVENT DATE: 2021
